FAERS Safety Report 5262639-3 (Version None)
Quarter: 2007Q1

REPORT INFORMATION
  Report Type: 
  Country: None (occurrence: None)
  Receive Date: 20070312
  Receipt Date: 20070228
  Transmission Date: 20070707
  Serious: Yes (Hospitalization, Other)
  Sender: FDA-Public Use
  Company Number: 2006UW22041

PATIENT
  Age: 560 Month
  Sex: Female
  Weight: 77.3 kg

DRUGS (10)
  1. SEROQUEL [Suspect]
     Indication: BIPOLAR DISORDER
     Route: 048
     Dates: start: 19980101
  2. SEROQUEL [Suspect]
     Indication: DEPRESSION
     Route: 048
     Dates: start: 19980101
  3. SEROQUEL [Suspect]
     Indication: SCHIZOPHRENIA
     Route: 048
     Dates: start: 19980101
  4. SEROQUEL [Suspect]
     Route: 048
     Dates: start: 19980101
  5. SEROQUEL [Suspect]
     Route: 048
     Dates: start: 19980101
  6. SEROQUEL [Suspect]
     Route: 048
     Dates: start: 19980101
  7. GEODON [Concomitant]
     Dates: start: 20010101
  8. HALDOL [Concomitant]
     Dates: start: 20010101
  9. RISPERDAL [Concomitant]
     Dates: start: 19990101
  10. ZOLOFT [Concomitant]
     Dates: start: 20010801

REACTIONS (7)
  - DIABETES MELLITUS [None]
  - HYPERTENSION [None]
  - INTESTINAL OBSTRUCTION [None]
  - MYOMECTOMY [None]
  - NEPHROSTOMY [None]
  - RENAL FAILURE [None]
  - UTERINE LEIOMYOMA [None]
